FAERS Safety Report 12806910 (Version 1)
Quarter: 2016Q4

REPORT INFORMATION
  Report Type: Spontaneous
  Country: US (occurrence: US)
  Receive Date: 20161004
  Receipt Date: 20161004
  Transmission Date: 20170207
  Serious: No
  Sender: FDA-Public Use
  Company Number: US-JNJFOC-20160823848

PATIENT
  Sex: Male
  Weight: 79.38 kg

DRUGS (2)
  1. MENS ROGAINE EXTRA STRENGTH [Suspect]
     Active Substance: MINOXIDIL
     Indication: ALOPECIA
     Dosage: 1/2 A CAP
     Route: 061
     Dates: start: 20160821
  2. MENS ROGAINE EXTRA STRENGTH [Suspect]
     Active Substance: MINOXIDIL
     Route: 061

REACTIONS (3)
  - Wrong technique in product usage process [Unknown]
  - Drug administered at inappropriate site [Unknown]
  - Product formulation issue [Unknown]
